FAERS Safety Report 5527929-5 (Version None)
Quarter: 2007Q4

REPORT INFORMATION
  Report Type: 
  Country: None (occurrence: None)
  Receive Date: 20071128
  Receipt Date: 20071113
  Transmission Date: 20080405
  Serious: Yes (Other)
  Sender: FDA-Public Use
  Company Number: CA-AVENTIS-200720824GDDC

PATIENT
  Sex: Female

DRUGS (2)
  1. TAXOTERE [Suspect]
     Route: 042
  2. UNKNOWN DRUG [Concomitant]

REACTIONS (3)
  - PYODERMA GANGRENOSUM [None]
  - SKIN DISCOLOURATION [None]
  - SKIN REACTION [None]
